FAERS Safety Report 19244347 (Version 1)
Quarter: 2021Q2

REPORT INFORMATION
  Report Type: Spontaneous
  Country: GB (occurrence: GB)
  Receive Date: 20210512
  Receipt Date: 20210512
  Transmission Date: 20210717
  Serious: No
  Sender: FDA-Public Use
  Company Number: GB-ALKEM LABORATORIES LIMITED-GB-ALKEM-2021-00411

PATIENT
  Age: 33 Year
  Sex: Female

DRUGS (11)
  1. LANSOPRAZOLE. [Suspect]
     Active Substance: LANSOPRAZOLE
     Indication: PRODUCT USED FOR UNKNOWN INDICATION
     Dosage: 15 MILLIGRAM
     Route: 048
  2. PARACETAMOL [Suspect]
     Active Substance: ACETAMINOPHEN
     Indication: PRODUCT USED FOR UNKNOWN INDICATION
     Dosage: 1 GRAM
     Route: 048
  3. ALEMTUZUMAB [Suspect]
     Active Substance: ALEMTUZUMAB
     Indication: MULTIPLE SCLEROSIS
     Dosage: 12 MILLIGRAM
     Route: 042
     Dates: start: 20190107
  4. COTRIMOXAZOLE [Suspect]
     Active Substance: SULFAMETHOXAZOLE\TRIMETHOPRIM
     Indication: PRODUCT USED FOR UNKNOWN INDICATION
     Dosage: 2800 MILLIGRAM, ONCE WEEKLY
     Route: 065
  5. FAMCICLOVIR. [Suspect]
     Active Substance: FAMCICLOVIR
     Indication: PRODUCT USED FOR UNKNOWN INDICATION
     Dosage: 250 MILLIGRAM (EVERY 12 HOUR)
     Route: 048
  6. IBUPROFEN. [Suspect]
     Active Substance: IBUPROFEN
     Indication: PRODUCT USED FOR UNKNOWN INDICATION
     Dosage: 2800 MILLIGRAM
     Route: 048
  7. ALEMTUZUMAB [Suspect]
     Active Substance: ALEMTUZUMAB
     Dosage: 12 MILLIGRAM
     Route: 042
     Dates: start: 20200106
  8. CHLORPHENAMINE [Suspect]
     Active Substance: CHLORPHENIRAMINE MALEATE
     Indication: PRODUCT USED FOR UNKNOWN INDICATION
     Dosage: 10 MILLIGRAM
     Route: 030
  9. IBUPROFEN. [Suspect]
     Active Substance: IBUPROFEN
     Dosage: 400 MILLIGRAM
     Route: 048
  10. METHYLPREDNISOLONE. [Suspect]
     Active Substance: METHYLPREDNISOLONE
     Indication: PRODUCT USED FOR UNKNOWN INDICATION
     Dosage: UNK
     Route: 042
  11. ERGOCALCIFEROL. [Concomitant]
     Active Substance: ERGOCALCIFEROL
     Indication: PRODUCT USED FOR UNKNOWN INDICATION
     Dosage: UNK
     Route: 065

REACTIONS (8)
  - Headache [Recovered/Resolved]
  - Rash [Unknown]
  - Palpitations [Recovered/Resolved]
  - Dizziness [Recovering/Resolving]
  - Oropharyngeal pain [Recovered/Resolved]
  - Flushing [Recovering/Resolving]
  - Heart rate decreased [Recovered/Resolved]
  - Incorrect product administration duration [Unknown]

NARRATIVE: CASE EVENT DATE: 201901
